FAERS Safety Report 25034493 (Version 1)
Quarter: 2025Q1

REPORT INFORMATION
  Report Type: Spontaneous
  Country: US (occurrence: US)
  Receive Date: 20250304
  Receipt Date: 20250304
  Transmission Date: 20250408
  Serious: No
  Sender: ROCHE
  Company Number: US-ROCHE-10000215420

PATIENT
  Sex: Female

DRUGS (1)
  1. XOFLUZA [Suspect]
     Active Substance: BALOXAVIR MARBOXIL
     Indication: Influenza
     Route: 065
     Dates: start: 20250214

REACTIONS (5)
  - Rash [Not Recovered/Not Resolved]
  - Urticaria [Unknown]
  - Blister [Unknown]
  - Malaise [Unknown]
  - Influenza [Unknown]
